FAERS Safety Report 11090239 (Version 1)
Quarter: 2015Q2

REPORT INFORMATION
  Report Type: Spontaneous
  Country: CA (occurrence: None)
  Receive Date: 20150501
  Receipt Date: 20150501
  Transmission Date: 20150821
  Serious: Yes (Other)
  Sender: FDA-Public Use
  Company Number: 2839180

PATIENT
  Age: 56 Year
  Sex: Female

DRUGS (3)
  1. SODIUM CHLORIDE. [Suspect]
     Active Substance: SODIUM CHLORIDE
     Indication: HAEMODIALYSIS
  2. BICART [Suspect]
     Active Substance: SODIUM BICARBONATE
     Indication: HAEMODIALYSIS
  3. INNOHEP [Concomitant]
     Active Substance: TINZAPARIN SODIUM

REACTIONS (4)
  - Haemorrhage [None]
  - Dizziness [None]
  - Haemodialysis complication [None]
  - Visual impairment [None]
